FAERS Safety Report 14334517 (Version 1)
Quarter: 2017Q4

REPORT INFORMATION
  Report Type: Spontaneous
  Country: FR (occurrence: FR)
  Receive Date: 20171228
  Receipt Date: 20171228
  Transmission Date: 20180321
  Serious: Yes (Hospitalization)
  Sender: FDA-Public Use
  Company Number: FR-BAUSCH-BL-2017-034724

PATIENT
  Age: 50 Year
  Sex: Female
  Weight: 56 kg

DRUGS (9)
  1. VELCADE [Suspect]
     Active Substance: BORTEZOMIB
     Indication: PLASMA CELL MYELOMA
     Dosage: LYOPHILIZED POWDER, 2 MG, CYCLIC (DAY 1, DAY 8 AND DAY 15)
     Route: 058
  2. LEVACT [Suspect]
     Active Substance: BENDAMUSTINE HYDROCHLORIDE
     Dosage: POWDER (EXCEPT DUSTING POWDER), 186 MG, CYCLIC (DAY 1 AND DAY 2) (C6D1)
     Route: 042
     Dates: start: 20161128, end: 20161129
  3. VELCADE [Suspect]
     Active Substance: BORTEZOMIB
     Dosage: LYOPHILIZED POWDER, CYCLIC (DAY 1, DAY 8 AND DAY 15) (C6D1,D2)
     Route: 058
     Dates: start: 20161128, end: 20161205
  4. ZOPHREN [Suspect]
     Active Substance: ONDANSETRON
     Dosage: 8 MG, CYCLIC (DAY 1 AND DAY 2)
     Route: 042
     Dates: start: 20161128, end: 20161129
  5. LEVACT [Suspect]
     Active Substance: BENDAMUSTINE HYDROCHLORIDE
     Indication: PLASMA CELL MYELOMA
     Dosage: POWDER (EXCEPT DUSTING POWDER), 186 MG, CYCLIC (DAY 1 AND DAY 2) (C6D1)
     Route: 042
  6. DEXAMETHASONE. [Suspect]
     Active Substance: DEXAMETHASONE
     Indication: PLASMA CELL MYELOMA
     Dosage: CYCLIC
     Route: 048
  7. ZOPHREN [Suspect]
     Active Substance: ONDANSETRON
     Indication: PROPHYLAXIS OF NAUSEA AND VOMITING
     Dosage: CYCLIC
     Route: 042
  8. DEXAMETHASONE. [Suspect]
     Active Substance: DEXAMETHASONE
     Dosage: 20 MG, CYCLIC (DAY 1, DAY 2, DAY 8 AND DAY 15)
     Route: 048
     Dates: start: 20161128, end: 20161205
  9. DUROGESIC [Concomitant]
     Active Substance: FENTANYL
     Indication: BONE PAIN
     Route: 062

REACTIONS (10)
  - Confusional state [Recovered/Resolved]
  - White blood cell count decreased [Unknown]
  - Cerebral vasoconstriction [Recovered/Resolved]
  - Hemiparesis [Recovered/Resolved]
  - Hypokalaemia [Unknown]
  - Off label use [Unknown]
  - Pyrexia [Unknown]
  - Hemianopia homonymous [Unknown]
  - Speech disorder [Recovered/Resolved]
  - Ventricular extrasystoles [Unknown]

NARRATIVE: CASE EVENT DATE: 20160118
